FAERS Safety Report 5067357-2 (Version None)
Quarter: 2006Q3

REPORT INFORMATION
  Report Type: 
  Country: None (occurrence: None)
  Receive Date: 20060714
  Receipt Date: 20060609
  Transmission Date: 20061208
  Serious: No
  Sender: FDA-Public Use
  Company Number: 2006SP002361

PATIENT
  Age: 84 Year
  Sex: Male
  Weight: 95.2554 kg

DRUGS (6)
  1. LUNESTA [Suspect]
     Indication: POOR QUALITY SLEEP
     Dosage: SEE IMAGE
     Route: 048
     Dates: start: 20060401, end: 20060501
  2. LUNESTA [Suspect]
     Indication: POOR QUALITY SLEEP
     Dosage: SEE IMAGE
     Route: 048
     Dates: start: 20060501
  3. ATIVAN [Concomitant]
  4. CELEXA [Concomitant]
  5. ANTIDEPRESSANTS [Concomitant]
  6. ANTIHYPERTENSIVES [Concomitant]

REACTIONS (1)
  - INITIAL INSOMNIA [None]
